FAERS Safety Report 11232713 (Version 2)
Quarter: 2015Q3

REPORT INFORMATION
  Report Type: Spontaneous
  Country: ES (occurrence: ES)
  Receive Date: 20150701
  Receipt Date: 20150707
  Transmission Date: 20151125
  Serious: Yes (Other)
  Sender: FDA-Public Use
  Company Number: PHHY2015ES073084

PATIENT
  Sex: Male

DRUGS (4)
  1. SALBUTAMOL SANDOZ [Suspect]
     Active Substance: ALBUTEROL
     Dosage: 27 UNITS IN MAY 2015
  2. SALBUTAMOL SANDOZ [Suspect]
     Active Substance: ALBUTEROL
     Dosage: 13 UNITS IN JUN 2015
  3. SALBUTAMOL SANDOZ [Suspect]
     Active Substance: ALBUTEROL
     Indication: PRODUCT USED FOR UNKNOWN INDICATION
     Dosage: 1 UNK, TID
     Route: 055
  4. ATROVENT [Concomitant]
     Active Substance: IPRATROPIUM BROMIDE
     Indication: PRODUCT USED FOR UNKNOWN INDICATION
     Route: 065

REACTIONS (2)
  - Drug abuse [Not Recovered/Not Resolved]
  - Drug administration error [Unknown]
